FAERS Safety Report 9691256 (Version 2)
Quarter: 2013Q4

REPORT INFORMATION
  Report Type: Spontaneous
  Country: GB (occurrence: GB)
  Receive Date: 20131115
  Receipt Date: 20131203
  Transmission Date: 20140711
  Serious: Yes (Hospitalization, Other)
  Sender: FDA-Public Use
  Company Number: PHFR2013GB006451

PATIENT
  Age: 50 Year
  Sex: Female

DRUGS (5)
  1. CLOZARIL [Suspect]
     Indication: SCHIZOPHRENIA
     Dosage: 250 MG, DAILY
     Route: 048
     Dates: start: 20070925
  2. AMISULPRIDE [Concomitant]
     Indication: SCHIZOPHRENIA
     Dosage: 800 MG, DAILY
     Route: 048
  3. CHOLECALCIFEROL [Concomitant]
     Dosage: 2000 IU, DAILY
     Route: 048
  4. IMIPRAMINE [Concomitant]
     Indication: ENURESIS
     Dosage: 75 MG, DAILY
     Route: 048
  5. MOVICOL [Concomitant]
     Indication: CONSTIPATION
     Dosage: 1 SACHET, DAILY
     Route: 048

REACTIONS (6)
  - Intentional self-injury [Recovered/Resolved]
  - Mental disorder [Unknown]
  - Type 2 diabetes mellitus [Not Recovered/Not Resolved]
  - Anxiety [Unknown]
  - Hypercholesterolaemia [Not Recovered/Not Resolved]
  - Weight increased [Unknown]
